FAERS Safety Report 10093744 (Version 1)
Quarter: 2014Q2

REPORT INFORMATION
  Report Type: Spontaneous
  Country: US (occurrence: US)
  Receive Date: 20140421
  Receipt Date: 20140421
  Transmission Date: 20141212
  Serious: No
  Sender: FDA-Public Use
  Company Number: US-SANOFI-AVENTIS-2013SA081172

PATIENT
  Age: 64 Year
  Sex: Female
  Weight: 110 kg

DRUGS (10)
  1. ALLEGRA [Suspect]
     Indication: MULTIPLE ALLERGIES
     Dosage: TAKEN FROM- TWO WEEKS AGO
     Route: 048
     Dates: start: 201307, end: 20130809
  2. METFORMIN [Concomitant]
  3. RANITIDINE [Concomitant]
  4. GLIMEPIRIDE [Concomitant]
  5. SPIRONOLACTONE [Concomitant]
  6. FUROSEMIDE [Concomitant]
  7. SOTALOL [Concomitant]
  8. QUINAPRIL [Concomitant]
  9. ATROVASTATIN [Concomitant]
  10. ASPIRIN [Concomitant]

REACTIONS (1)
  - Drug ineffective [Unknown]
